FAERS Safety Report 9251274 (Version 1)
Quarter: 2013Q1

REPORT INFORMATION
  Report Type: Spontaneous
  Country: US (occurrence: None)
  Receive Date: 20130305
  Receipt Date: 20130305
  Transmission Date: 20140127
  Serious: Yes (Hospitalization)
  Sender: FDA-Public Use
  Company Number: 163-21880-12090351

PATIENT
  Age: 54 Year
  Sex: Male
  Weight: 112.49 kg

DRUGS (1)
  1. REVLIMID [Suspect]
     Dosage: 25MG, 21 IN 21 D, PO
     Route: 048
     Dates: start: 2008, end: 20120608

REACTIONS (3)
  - Epistaxis [None]
  - Drug ineffective [None]
  - Plasma cell myeloma [None]
